FAERS Safety Report 9221551 (Version 1)
Quarter: 2013Q1

REPORT INFORMATION
  Report Type: Spontaneous
  Country: US (occurrence: None)
  Receive Date: 20120831
  Receipt Date: 20120831
  Transmission Date: 20140127
  Serious: Yes (Life-Threatening)
  Sender: FDA-Public Use
  Company Number: WAES 1206USA04303

PATIENT
  Age: 60 Year
  Sex: Male

DRUGS (1)
  1. JANUMET XR [Suspect]
     Route: 048

REACTIONS (1)
  - Angioedema [None]
